FAERS Safety Report 25812215 (Version 1)
Quarter: 2025Q3

REPORT INFORMATION
  Report Type: Other
  Country: MD (occurrence: MD)
  Receive Date: 20250917
  Receipt Date: 20250917
  Transmission Date: 20251021
  Serious: Yes (Other)
  Sender: MACLEODS
  Company Number: MD-MACLEODS PHARMA-MAC2025055192

PATIENT
  Age: 53 Year
  Sex: Female
  Weight: 52 kg

DRUGS (1)
  1. PYRAZINAMIDE [Suspect]
     Active Substance: PYRAZINAMIDE
     Indication: Pulmonary tuberculosis
     Route: 048
     Dates: start: 20240906, end: 20240916

REACTIONS (1)
  - Drug-induced liver injury [Recovered/Resolved]

NARRATIVE: CASE EVENT DATE: 20240916
